FAERS Safety Report 4845434-6 (Version None)
Quarter: 2005Q4

REPORT INFORMATION
  Report Type: 
  Country: None (occurrence: None)
  Receive Date: 20051125
  Receipt Date: 20051117
  Transmission Date: 20060501
  Serious: Yes (Death)
  Sender: FDA-Public Use
  Company Number: GBWYE155621NOV05

PATIENT
  Age: 31 Year
  Sex: Female

DRUGS (2)
  1. EFFEXOR XR [Suspect]
     Dosage: 225MG
     Route: 048
  2. DICLOFENAC (DICLOFENAC) [Suspect]
     Indication: ABDOMINAL PAIN
     Dosage: 100 MG
     Route: 051

REACTIONS (1)
  - GASTROINTESTINAL HAEMORRHAGE [None]
